FAERS Safety Report 10740478 (Version 3)
Quarter: 2015Q2

REPORT INFORMATION
  Report Type: Spontaneous
  Country: US (occurrence: US)
  Receive Date: 20150127
  Receipt Date: 20150408
  Transmission Date: 20150821
  Serious: Yes (Other)
  Sender: FDA-Public Use
  Company Number: US-BEH-2015048037

PATIENT
  Sex: Male
  Weight: 68 kg

DRUGS (25)
  1. HIZENTRA [Suspect]
     Active Substance: HUMAN IMMUNOGLOBULIN G
     Dosage: 4 GM 20 ML VIAL; 7 GM WEEKLY
     Route: 058
  2. METOPROLOL [Concomitant]
     Active Substance: METOPROLOL
  3. ACETYL L-CARNITINE [Concomitant]
  4. RIBOFLAVIN [Concomitant]
     Active Substance: RIBOFLAVIN
  5. EPIPEN [Concomitant]
     Active Substance: EPINEPHRINE
  6. BUTALBITAL ASA CAFFEINE [Concomitant]
  7. OXYCODONE [Concomitant]
     Active Substance: OXYCODONE
  8. LIDODERM [Concomitant]
     Active Substance: LIDOCAINE
  9. BUTORPHANOL [Concomitant]
     Active Substance: BUTORPHANOL
  10. HIZENTRA [Suspect]
     Active Substance: HUMAN IMMUNOGLOBULIN G
     Dosage: 2 GM 10 ML VIAL; 7 GM WEEKLY
     Route: 058
  11. OXYGEN. [Concomitant]
     Active Substance: OXYGEN
  12. CYANOCOBALAMIN. [Concomitant]
     Active Substance: CYANOCOBALAMIN
  13. HIZENTRA [Suspect]
     Active Substance: HUMAN IMMUNOGLOBULIN G
     Indication: IMMUNODEFICIENCY COMMON VARIABLE
     Dosage: 1 GM 5 ML VIAL;7 GM WEEKLY
     Route: 058
  14. COENZYME Q10 [Concomitant]
     Active Substance: UBIDECARENONE
  15. NORCO [Concomitant]
     Active Substance: ACETAMINOPHEN\HYDROCODONE BITARTRATE
  16. LISINOPRIL. [Concomitant]
     Active Substance: LISINOPRIL
  17. CLONIDINE. [Concomitant]
     Active Substance: CLONIDINE
  18. PRILOSEC [Concomitant]
     Active Substance: OMEPRAZOLE MAGNESIUM
  19. FLEXERIL [Concomitant]
     Active Substance: CYCLOBENZAPRINE HYDROCHLORIDE
  20. DIPHENHYDRAMINE [Concomitant]
     Active Substance: DIPHENHYDRAMINE
  21. DIAZEPAM. [Concomitant]
     Active Substance: DIAZEPAM
  22. PHENTERMINE [Concomitant]
     Active Substance: PHENTERMINE
  23. PAXIL [Concomitant]
     Active Substance: PAROXETINE HYDROCHLORIDE
  24. EFFEXOR [Concomitant]
     Active Substance: VENLAFAXINE HYDROCHLORIDE
  25. TESTOSTERONE. [Concomitant]
     Active Substance: TESTOSTERONE

REACTIONS (1)
  - Renal failure [Unknown]
